FAERS Safety Report 5258114-2 (Version None)
Quarter: 2007Q2

REPORT INFORMATION
  Report Type: 
  Country: None (occurrence: None)
  Receive Date: 20070307
  Receipt Date: 20070223
  Transmission Date: 20071010
  Serious: Yes (Other)
  Sender: FDA-Public Use
  Company Number: JP-PFIZER INC-2007011139

PATIENT
  Sex: Female
  Weight: 35 kg

DRUGS (7)
  1. CABERGOLINE [Suspect]
     Indication: PARKINSON'S DISEASE
     Route: 048
  2. ALMARL [Suspect]
     Indication: PARKINSON'S DISEASE
     Route: 048
     Dates: start: 20060106
  3. CLONAZEPAM [Suspect]
     Indication: HYPOAESTHESIA
     Route: 048
     Dates: start: 20060106
  4. FOSAMAX [Suspect]
     Indication: OSTEOPOROSIS
     Route: 048
  5. DEPAS [Suspect]
     Indication: DEPRESSION
     Route: 048
     Dates: start: 20060106
  6. POLLAKISU [Suspect]
     Route: 048
     Dates: start: 20060106
  7. MENESIT [Concomitant]
     Route: 048
     Dates: start: 20060106

REACTIONS (2)
  - HYPOGLYCAEMIA [None]
  - TREMOR [None]
